FAERS Safety Report 25457512 (Version 1)
Quarter: 2025Q2

REPORT INFORMATION
  Report Type: Spontaneous
  Country: US (occurrence: US)
  Receive Date: 20250619
  Receipt Date: 20250619
  Transmission Date: 20250716
  Serious: Yes (Other)
  Sender: BRISTOL-MYERS SQUIBB COMPANY
  Company Number: US-BRISTOL-MYERS SQUIBB COMPANY-2025-086665

PATIENT
  Age: 58 Year
  Sex: Male

DRUGS (1)
  1. REVLIMID [Suspect]
     Active Substance: LENALIDOMIDE
     Indication: Plasma cell myeloma
     Dosage: 25MG FOR 21 DAYS ON 7 DAYS OFF
     Route: 048

REACTIONS (3)
  - Arthralgia [Unknown]
  - Abdominal pain [Unknown]
  - Pneumonia [Unknown]

NARRATIVE: CASE EVENT DATE: 20250615
